FAERS Safety Report 4888098-8 (Version None)
Quarter: 2006Q1

REPORT INFORMATION
  Report Type: 
  Country: None (occurrence: None)
  Receive Date: 20060123
  Receipt Date: 20051005
  Transmission Date: 20060701
  Serious: Yes (Hospitalization, Disabling)
  Sender: FDA-Public Use
  Company Number: US-MERCK-0510USA07113

PATIENT
  Age: 61 Year
  Sex: Male
  Weight: 100 kg

DRUGS (6)
  1. VIOXX [Suspect]
     Indication: ARTHRITIS
     Route: 048
     Dates: start: 20010607, end: 20041001
  2. BELLERGAL-S TABLETS [Concomitant]
     Route: 065
  3. LIPITOR [Concomitant]
     Route: 065
  4. UBIDECARENONE [Concomitant]
     Route: 065
  5. GLUCOSAMINE SULFATE [Concomitant]
     Route: 065
  6. CHONDROITIN SULFATE SODIUM [Concomitant]
     Route: 065

REACTIONS (3)
  - CARDIOVASCULAR DISORDER [None]
  - LOSS OF CONSCIOUSNESS [None]
  - MYOCARDIAL INFARCTION [None]
